FAERS Safety Report 16292405 (Version 3)
Quarter: 2022Q4

REPORT INFORMATION
  Report Type: Spontaneous
  Country: US (occurrence: None)
  Receive Date: 20190509
  Receipt Date: 20221107
  Transmission Date: 20230112
  Serious: Yes (Death, Other)
  Sender: FDA-Public Use
  Company Number: 2019SE65157

PATIENT
  Age: 24146 Day
  Sex: Female
  Weight: 63.5 kg

DRUGS (46)
  1. NEXIUM [Suspect]
     Active Substance: ESOMEPRAZOLE MAGNESIUM
     Indication: Gastrooesophageal reflux disease
     Route: 048
     Dates: start: 201201, end: 201412
  2. PRILOSEC [Suspect]
     Active Substance: OMEPRAZOLE MAGNESIUM
     Indication: Gastrooesophageal reflux disease
     Route: 048
     Dates: start: 201201, end: 201412
  3. PRILOSEC OTC [Suspect]
     Active Substance: OMEPRAZOLE MAGNESIUM
     Indication: Gastrooesophageal reflux disease
     Route: 048
     Dates: start: 201201, end: 201412
  4. PREVACID [Suspect]
     Active Substance: LANSOPRAZOLE
     Indication: Gastrooesophageal reflux disease
     Route: 065
     Dates: start: 201201, end: 201412
  5. OMEPRAZOLE SODIUM [Suspect]
     Active Substance: OMEPRAZOLE SODIUM
     Indication: Gastrooesophageal reflux disease
     Route: 065
  6. TUMS [Concomitant]
     Active Substance: CALCIUM CARBONATE
  7. ALKA-SELTZER [Concomitant]
     Active Substance: ANHYDROUS CITRIC ACID\ASPIRIN\SODIUM BICARBONATE
  8. PEPTO-BISMOL [Concomitant]
     Active Substance: BISMUTH SUBSALICYLATE
  9. MAALOX ANTACID [Concomitant]
     Active Substance: ALUMINUM HYDROXIDE\DIMETHICONE\MAGNESIUM HYDROXIDE
  10. ROLAIDS [Concomitant]
     Active Substance: CALCIUM CARBONATE\MAGNESIUM HYDROXIDE
  11. MYLANTA [Concomitant]
     Active Substance: ALUMINUM HYDROXIDE\DIMETHICONE\MAGNESIUM HYDROXIDE
  12. AMOXICILLIN [Concomitant]
     Active Substance: AMOXICILLIN
  13. IBUPROFEN [Concomitant]
     Active Substance: IBUPROFEN
  14. QVAR [Concomitant]
     Active Substance: BECLOMETHASONE DIPROPIONATE
  15. PROVENTIL [Concomitant]
     Active Substance: ALBUTEROL
  16. SINGULAIR [Concomitant]
     Active Substance: MONTELUKAST SODIUM
  17. LISINOPRIL [Concomitant]
     Active Substance: LISINOPRIL
  18. DIAZEPAM [Concomitant]
     Active Substance: DIAZEPAM
  19. PROAIR HFA [Concomitant]
     Active Substance: ALBUTEROL SULFATE
  20. OXYBUTYNIN [Concomitant]
     Active Substance: OXYBUTYNIN
  21. LORAZEPAM [Concomitant]
     Active Substance: LORAZEPAM
  22. PYRIDOXINE [Concomitant]
     Active Substance: PYRIDOXINE
  23. TRAMADOL [Concomitant]
     Active Substance: TRAMADOL
  24. VITAMIN B12 [Concomitant]
     Active Substance: CYANOCOBALAMIN
  25. HYDRODIURIL [Concomitant]
     Active Substance: HYDROCHLOROTHIAZIDE
  26. NORVASC [Concomitant]
     Active Substance: AMLODIPINE BESYLATE
  27. LOPRESSOR [Concomitant]
     Active Substance: METOPROLOL TARTRATE
  28. DELTASONE [Concomitant]
     Active Substance: PREDNISONE
  29. ASPIRIN [Concomitant]
     Active Substance: ASPIRIN
  30. COZAAR [Concomitant]
     Active Substance: LOSARTAN POTASSIUM
  31. METAMUCIL [Concomitant]
     Active Substance: PLANTAGO SEED
  32. KENALOG [Concomitant]
     Active Substance: TRIAMCINOLONE ACETONIDE
  33. CODEINE [Concomitant]
     Active Substance: CODEINE
  34. CALCIUM CARBONATE [Concomitant]
     Active Substance: CALCIUM CARBONATE
  35. DEXTROSE [Concomitant]
     Active Substance: DEXTROSE
  36. HEPARIN [Concomitant]
     Active Substance: HEPARIN SODIUM
  37. PREDNISONE [Concomitant]
     Active Substance: PREDNISONE
  38. FISH OIL [Concomitant]
     Active Substance: FISH OIL
  39. ATIVAN [Concomitant]
     Active Substance: LORAZEPAM
  40. LACTOBACILLUS ACIDOPHILUS [Concomitant]
     Active Substance: LACTOBACILLUS ACIDOPHILUS
  41. FAMOTIDINE [Concomitant]
     Active Substance: FAMOTIDINE
  42. FERROUS SULFATE [Concomitant]
     Active Substance: FERROUS SULFATE
  43. RENVELA [Concomitant]
     Active Substance: SEVELAMER CARBONATE
  44. HYDRALAZINE [Concomitant]
     Active Substance: HYDRALAZINE HYDROCHLORIDE
  45. PSYLLIUM [Concomitant]
     Active Substance: PLANTAGO SEED
  46. HEPARIN [Concomitant]
     Active Substance: HEPARIN SODIUM

REACTIONS (6)
  - End stage renal disease [Fatal]
  - Acute kidney injury [Not Recovered/Not Resolved]
  - Chronic kidney disease [Not Recovered/Not Resolved]
  - Renal failure [Unknown]
  - Chronic kidney disease-mineral and bone disorder [Unknown]
  - Nephrogenic anaemia [Unknown]

NARRATIVE: CASE EVENT DATE: 20100421
